FAERS Safety Report 17768809 (Version 6)
Quarter: 2020Q3

REPORT INFORMATION
  Report Type: Spontaneous
  Country: DE (occurrence: DE)
  Receive Date: 20200512
  Receipt Date: 20200701
  Transmission Date: 20201102
  Serious: Yes (Hospitalization, Other)
  Sender: FDA-Public Use
  Company Number: DE-AUROBINDO-AUR-APL-2020-024114

PATIENT
  Age: 56 Year
  Sex: Female
  Weight: 60 kg

DRUGS (6)
  1. ZOLEDRONIC ACID [Concomitant]
     Active Substance: ZOLEDRONIC ACID
     Indication: HYPERCALCAEMIA
     Dosage: 5 MILLIGRAM
     Route: 065
  2. ACEMETACIN [Concomitant]
     Active Substance: ACEMETACIN
     Indication: ANKYLOSING SPONDYLITIS
     Dosage: 90 MILLIGRAM, ONCE A DAY
     Route: 065
  3. AMLODIPINE [Concomitant]
     Active Substance: AMLODIPINE BESYLATE
     Indication: HYPERTENSION
     Dosage: 5 MILLIGRAM, ONCE A DAY
     Route: 065
  4. CINACALCET FILM COATED TABLETS [Suspect]
     Active Substance: CINACALCET HYDROCHLORIDE
     Indication: HYPERPARATHYROIDISM
     Dosage: 60 MILLIGRAM, ONCE A DAY
     Route: 048
     Dates: start: 20180827
  5. ZOLEDRONIC ACID [Concomitant]
     Active Substance: ZOLEDRONIC ACID
     Indication: HYPERPARATHYROIDISM PRIMARY
  6. CINACALCET FILM COATED TABLETS [Suspect]
     Active Substance: CINACALCET HYDROCHLORIDE
     Indication: HYPERPARATHYROIDISM PRIMARY
     Dosage: 30 MILLIGRAM, ONCE A DAY
     Route: 048

REACTIONS (12)
  - Disease progression [Recovered/Resolved]
  - Hypocalcaemia [Recovered/Resolved]
  - Drug ineffective [Unknown]
  - Parathyroid tumour benign [Recovered/Resolved]
  - Cyst [Recovering/Resolving]
  - Neoplasm [Recovering/Resolving]
  - Discomfort [Recovering/Resolving]
  - Swelling [Recovering/Resolving]
  - Treatment failure [Recovering/Resolving]
  - Haematoma [Unknown]
  - Back pain [Unknown]
  - Post procedural haematoma [Unknown]

NARRATIVE: CASE EVENT DATE: 20180913
